FAERS Safety Report 15326047 (Version 1)
Quarter: 2018Q3

REPORT INFORMATION
  Report Type: Spontaneous
  Country: US (occurrence: US)
  Receive Date: 20180823
  Receipt Date: 20180823
  Transmission Date: 20181010
  Serious: No
  Sender: FDA-Public Use
  Company Number: None

PATIENT
  Age: 35 Year
  Sex: Female

DRUGS (5)
  1. SCOPOLAMINE [Suspect]
     Active Substance: SCOPOLAMINE
     Indication: NAUSEA
     Dosage: ?          QUANTITY:1 PATCH(ES);?
  2. SCOPOLAMINE [Suspect]
     Active Substance: SCOPOLAMINE
     Indication: VOMITING
     Dosage: ?          QUANTITY:1 PATCH(ES);?
  3. GABAPENTIN. [Concomitant]
     Active Substance: GABAPENTIN
  4. HCTZ [Concomitant]
     Active Substance: HYDROCHLOROTHIAZIDE
  5. OMEPRAZOLE. [Concomitant]
     Active Substance: OMEPRAZOLE

REACTIONS (3)
  - Application site haemorrhage [None]
  - Application site burn [None]
  - Vomiting [None]

NARRATIVE: CASE EVENT DATE: 20180821
